FAERS Safety Report 8305858 (Version 7)
Quarter: 2013Q4

REPORT INFORMATION
  Report Type: Report from Study
  Country: BR (occurrence: BR)
  Receive Date: 20111221
  Receipt Date: 20131212
  Transmission Date: 20140711
  Serious: Yes (Hospitalization, Other)
  Sender: FDA-Public Use
  Company Number: BR-ROCHE-1023239

PATIENT
  Age: 64 Year
  Sex: Female
  Weight: 75 kg

DRUGS (14)
  1. XOLAIR [Suspect]
     Indication: ASTHMA
     Route: 065
     Dates: start: 20100101
  2. XOLAIR [Suspect]
     Route: 065
     Dates: start: 20110915
  3. XOLAIR [Suspect]
     Route: 065
     Dates: start: 201204
  4. FORASEQ (BRAZIL) [Suspect]
     Indication: ASTHMA
     Dosage: 12/400 UG
     Route: 065
  5. NASONEX [Concomitant]
  6. FLUMIL (ACETYLCYSTEINE) [Concomitant]
  7. SPIRIVA [Concomitant]
  8. BAMIFIX [Concomitant]
  9. FLUIMUCIL (BRAZIL) [Concomitant]
  10. VYTORIN [Concomitant]
  11. OMEPRAZOL [Concomitant]
  12. PERIDAL [Concomitant]
  13. BUDESONIDE [Concomitant]
  14. LOSARTAN [Concomitant]

REACTIONS (13)
  - Chest pain [Not Recovered/Not Resolved]
  - Asthma [Recovering/Resolving]
  - Fatigue [Recovering/Resolving]
  - Dyspnoea [Recovering/Resolving]
  - Chronic obstructive pulmonary disease [Recovering/Resolving]
  - Respiratory tract infection [Unknown]
  - Weight increased [Unknown]
  - Wheezing [Recovering/Resolving]
  - Catheter site related reaction [Unknown]
  - Malaise [Unknown]
  - Discomfort [Recovering/Resolving]
  - Anxiety [Recovering/Resolving]
  - Abdominal distension [Unknown]
